FAERS Safety Report 4804035-6 (Version None)
Quarter: 2005Q4

REPORT INFORMATION
  Report Type: 
  Country: None (occurrence: None)
  Receive Date: 20051018
  Receipt Date: 20051018
  Transmission Date: 20060501
  Serious: No
  Sender: FDA-Public Use
  Company Number: None

PATIENT
  Age: 46 Year
  Sex: Male

DRUGS (2)
  1. NITROSTAT [Suspect]
     Indication: ACUTE MYOCARDIAL INFARCTION
     Dosage: 0.4 MG SL X 1 DOSE
     Route: 060
     Dates: start: 20050901
  2. GLIPIZIDE [Concomitant]

REACTIONS (2)
  - CONVULSION [None]
  - HYPOTENSION [None]
